FAERS Safety Report 7137852-0 (Version None)
Quarter: 2010Q4

REPORT INFORMATION
  Report Type: 
  Country: None (occurrence: None)
  Receive Date: 20101103
  Receipt Date: 20100809
  Transmission Date: 20110411
  Serious: Yes (Other)
  Sender: FDA-Public Use
  Company Number: US-WYE-H16852310

PATIENT
  Age: 43 Year
  Sex: Female
  Weight: 108.96 kg

DRUGS (4)
  1. EFFEXOR XR [Suspect]
     Indication: ANXIETY
     Dosage: 150 MG 1X PER 1 DAY ; 150 MG 1X PER 1 DAY
     Dates: start: 20090101, end: 20100805
  2. EFFEXOR XR [Suspect]
     Indication: ANXIETY
     Dosage: 150 MG 1X PER 1 DAY ; 150 MG 1X PER 1 DAY
     Dates: start: 20100807
  3. TIAZAC [Concomitant]
  4. VITAMIN B (VITAMIN B) [Concomitant]

REACTIONS (4)
  - CAPSULE ISSUE [None]
  - DRUG WITHDRAWAL SYNDROME [None]
  - HEADACHE [None]
  - NAUSEA [None]
